FAERS Safety Report 7570384-4 (Version None)
Quarter: 2011Q2

REPORT INFORMATION
  Report Type: 
  Country: None (occurrence: None)
  Receive Date: 20110624
  Receipt Date: 20110617
  Transmission Date: 20111010
  Serious: Yes (Hospitalization, Other)
  Sender: FDA-Public Use
  Company Number: US-PFIZER INC-2011100334

PATIENT
  Sex: Male
  Weight: 85 kg

DRUGS (17)
  1. EPLERENONE [Suspect]
     Dosage: 12.5 MG, DAILY
     Route: 048
     Dates: start: 20090805, end: 20100615
  2. LISINOPRIL [Concomitant]
     Dosage: UNK
     Route: 048
     Dates: start: 19980201, end: 20110427
  3. ONGLYZA [Concomitant]
     Dosage: UNK
     Route: 048
     Dates: start: 20101201, end: 20110427
  4. METFORMIN [Concomitant]
     Dosage: UNK
     Route: 048
     Dates: start: 19980201, end: 20110427
  5. STARLIX [Concomitant]
     Dosage: UNK
     Route: 048
     Dates: start: 19980201, end: 20110427
  6. LASIX [Concomitant]
     Dosage: UNK
     Route: 048
     Dates: start: 20090601, end: 20110427
  7. WARFARIN [Concomitant]
     Dosage: UNK
     Route: 048
     Dates: start: 19980314
  8. NITROGLYCERIN [Concomitant]
     Dosage: UNK
     Route: 048
     Dates: start: 19980201
  9. INDOMETHACIN [Concomitant]
     Dosage: UNK
     Route: 048
     Dates: start: 20100329, end: 20110427
  10. EPLERENONE [Suspect]
     Dosage: 25 MG, DAILY
     Route: 048
     Dates: start: 20100616, end: 20100914
  11. EPLERENONE [Suspect]
     Indication: CARDIAC FAILURE CONGESTIVE
     Dosage: 12.5 MG, DAILY
     Route: 048
     Dates: start: 20090123, end: 20090129
  12. DIGOXIN [Suspect]
     Indication: CARDIAC FAILURE CONGESTIVE
     Dosage: 125 UG, 1X/DAY
     Route: 048
     Dates: start: 20090130, end: 20110427
  13. EPLERENONE [Suspect]
     Dosage: 25 MG, DAILY
     Route: 048
     Dates: start: 20090130, end: 20090602
  14. COREG [Concomitant]
     Dosage: UNK
     Route: 048
     Dates: start: 19980201
  15. PROCRIT [Concomitant]
     Dosage: UNK
     Route: 048
     Dates: start: 20090804
  16. METHYLPREDNISOLONE ACETATE [Concomitant]
  17. LIPITOR [Concomitant]
     Dosage: UNK
     Route: 048
     Dates: start: 19980201

REACTIONS (5)
  - GOUT [None]
  - TOXICITY TO VARIOUS AGENTS [None]
  - MENTAL STATUS CHANGES [None]
  - RENAL FAILURE ACUTE [None]
  - BRADYCARDIA [None]
